FAERS Safety Report 8147025-0 (Version None)
Quarter: 2012Q1

REPORT INFORMATION
  Report Type: 
  Country: None (occurrence: None)
  Receive Date: 20120218
  Receipt Date: 20110104
  Transmission Date: 20120608
  Serious: No
  Sender: FDA-Public Use
  Company Number: US-ALLERGAN-1100031US

PATIENT
  Age: 65 Year
  Sex: Female

DRUGS (2)
  1. BOTOX COSMETIC [Suspect]
     Dosage: 30 UNK, UNK
     Dates: start: 20101214, end: 20101214
  2. BOTOX COSMETIC [Suspect]
     Indication: SKIN WRINKLING
     Dosage: 2 UNITS, SINGLE
     Route: 030
     Dates: start: 20101221, end: 20101221

REACTIONS (1)
  - FACIAL PARESIS [None]
